FAERS Safety Report 10960639 (Version 2)
Quarter: 2015Q2

REPORT INFORMATION
  Report Type: Spontaneous
  Country: UZ (occurrence: None)
  Receive Date: 20150325
  Receipt Date: 20150528
  Transmission Date: 20150821
  Serious: Yes (Hospitalization, Other)
  Sender: FDA-Public Use
  Company Number: B1027202A

PATIENT
  Sex: Male

DRUGS (2)
  1. LAMIVUDINE AND ZIDOVUDINE [Suspect]
     Active Substance: LAMIVUDINE\ZIDOVUDINE
     Indication: HIV INFECTION
  2. EFAVIRENZ (EFAVIRENZ) [Concomitant]
     Active Substance: EFAVIRENZ

REACTIONS (13)
  - Irritability [None]
  - Arthralgia [None]
  - Diarrhoea [None]
  - Poisoning [None]
  - Impaired work ability [None]
  - Neck pain [None]
  - Conversion disorder [None]
  - Renal disorder [None]
  - Disturbance in attention [None]
  - Anxiety [None]
  - Weight decreased [None]
  - Depression [None]
  - Fear of death [None]
